FAERS Safety Report 5011212-0 (Version None)
Quarter: 2006Q2

REPORT INFORMATION
  Report Type: 
  Country: None (occurrence: None)
  Receive Date: 20060523
  Receipt Date: 20060504
  Transmission Date: 20061013
  Serious: Yes (Life-Threatening)
  Sender: FDA-Public Use
  Company Number: US070159

PATIENT
  Age: 70 Year
  Sex: Male

DRUGS (12)
  1. ENBREL [Suspect]
     Indication: WEGENER'S GRANULOMATOSIS
     Dosage: 25 MG, 2 IN 1 WEEKS, SC
     Route: 058
     Dates: end: 20030901
  2. PREDNISONE [Concomitant]
  3. METHOTREXATE [Concomitant]
  4. FOLIC ACID [Concomitant]
  5. TRIMETHOPRIM + SULFAMETHOXAZOLE [Concomitant]
  6. GLIPIZIDE [Concomitant]
  7. ROSIGLITAZONE [Concomitant]
  8. PRAVASTATIN SODIUM [Concomitant]
  9. HYDROCHLOROTHIAZIDE [Concomitant]
  10. ISRADIPINE [Concomitant]
  11. BRIMONDINE TARTRATE [Concomitant]
  12. TRAVOPROST [Concomitant]

REACTIONS (2)
  - OFF LABEL USE [None]
  - PROSTATE CANCER [None]
